FAERS Safety Report 6343602-8 (Version None)
Quarter: 2009Q3

REPORT INFORMATION
  Report Type: 
  Country: None (occurrence: None)
  Receive Date: 20090908
  Receipt Date: 20090901
  Transmission Date: 20100115
  Serious: Yes (Life-Threatening)
  Sender: FDA-Public Use
  Company Number: BR-ASTRAZENECA-2009SE10874

PATIENT
  Age: 48 Year
  Sex: Female
  Weight: 75 kg

DRUGS (17)
  1. PRILOSEC [Suspect]
     Route: 042
     Dates: start: 20090726, end: 20090801
  2. E5564/ PLACEBO [Suspect]
     Indication: SEPSIS
     Dosage: FIRST LOADING DOSE, 1 IN 12 HOURS
     Route: 042
     Dates: start: 20090801, end: 20090802
  3. E5564/ PLACEBO [Suspect]
     Dosage: SECOND LOADING DOSE, 1 IN 12 HOURS
     Route: 042
     Dates: start: 20090802, end: 20090802
  4. E5564/ PLACEBO [Suspect]
     Dosage: MAINTENANCE DOSES  1-9 , 1 IN 12 HOURS
     Route: 042
     Dates: start: 20090802, end: 20090806
  5. FLUCONAZOLE [Suspect]
     Dates: end: 20090801
  6. MIDAZOLAM HCL [Concomitant]
     Route: 042
     Dates: start: 20090801
  7. MIDAZOLAM HCL [Concomitant]
     Route: 042
     Dates: start: 20090801
  8. FENTANYL [Concomitant]
     Route: 042
     Dates: start: 20090801
  9. NORADRENALINE [Concomitant]
     Dosage: 7 MG/KG/MIN
     Route: 042
     Dates: start: 20090801
  10. HYDROCORTISONE [Concomitant]
     Indication: SEPTIC SHOCK
     Route: 042
     Dates: start: 20090801
  11. HYDROCORTISONE [Concomitant]
     Dosage: 50 MG 3X
     Route: 042
     Dates: start: 20090801
  12. FUROSEMIDE [Concomitant]
     Route: 042
     Dates: start: 20090802
  13. DOBUTAMINE HCL [Concomitant]
     Dosage: 12.5 MG/KG/MIN
     Route: 042
  14. ENOXAPARIN SODIUM [Concomitant]
     Route: 058
  15. VASOPRESSIN [Concomitant]
     Route: 042
  16. MEROPENEM [Concomitant]
  17. TEICOPLANIN [Concomitant]

REACTIONS (3)
  - HEPATIC FAILURE [None]
  - RENAL FAILURE ACUTE [None]
  - SUPRAVENTRICULAR TACHYCARDIA [None]
